FAERS Safety Report 25478768 (Version 1)
Quarter: 2025Q2

REPORT INFORMATION
  Report Type: Spontaneous
  Country: BE (occurrence: BE)
  Receive Date: 20250625
  Receipt Date: 20250625
  Transmission Date: 20250716
  Serious: Yes (Other)
  Sender: ORGANON
  Company Number: BE-ORGANON-O2506BEL002198

PATIENT
  Sex: Female

DRUGS (4)
  1. ETONOGESTREL [Suspect]
     Active Substance: ETONOGESTREL
     Route: 059
     Dates: start: 2022, end: 2025
  2. ETONOGESTREL [Suspect]
     Active Substance: ETONOGESTREL
     Route: 065
     Dates: start: 2025
  3. ETONOGESTREL [Concomitant]
     Active Substance: ETONOGESTREL
     Route: 059
  4. ETONOGESTREL [Concomitant]
     Active Substance: ETONOGESTREL
     Route: 059

REACTIONS (4)
  - Vascular graft [Unknown]
  - Weight decreased [Unknown]
  - Skin atrophy [Not Recovered/Not Resolved]
  - Complication of device insertion [Unknown]

NARRATIVE: CASE EVENT DATE: 20240101
